FAERS Safety Report 17013801 (Version 1)
Quarter: 2019Q4

REPORT INFORMATION
  Report Type: Other
  Country: FR (occurrence: FR)
  Receive Date: 20191110
  Receipt Date: 20191110
  Transmission Date: 20200122
  Serious: Yes (Other)
  Sender: FDA-Public Use
  Company Number: FR-DENTSPLY-2019SCDP000610

PATIENT
  Age: 42 Year
  Sex: Female

DRUGS (6)
  1. KENACORT A [TRIAMCINOLONE ACETONIDE] [Suspect]
     Active Substance: TRIAMCINOLONE ACETONIDE
     Indication: SKIN COSMETIC PROCEDURE
     Dosage: TOTAL
     Route: 058
     Dates: start: 201906, end: 201906
  2. PRILOCAINE AND LIDOCAINE [Suspect]
     Active Substance: LIDOCAINE\PRILOCAINE
     Indication: LOCAL ANAESTHESIA
     Dosage: TOTAL
     Route: 003
     Dates: start: 201906, end: 201906
  3. TRIDESONIT [Suspect]
     Active Substance: DESONIDE
     Indication: PRODUCT USED FOR UNKNOWN INDICATION
     Dosage: UNK
     Route: 003
     Dates: start: 20190328, end: 201906
  4. EFFIZINC [Suspect]
     Active Substance: ZINC GLUCONATE
     Indication: ACNE
     Dosage: 4, UNK
     Route: 048
     Dates: start: 20190328, end: 201906
  5. IRBESARTAN BIOGARAN [Concomitant]
     Active Substance: IRBESARTAN
     Indication: PRODUCT USED FOR UNKNOWN INDICATION
     Dosage: UNK
  6. OPTIDRIL [Concomitant]
     Active Substance: ETHINYL ESTRADIOL\LEVONORGESTREL
     Indication: PRODUCT USED FOR UNKNOWN INDICATION
     Dosage: UNK

REACTIONS (1)
  - Skin atrophy [None]

NARRATIVE: CASE EVENT DATE: 20190615
